FAERS Safety Report 9212506 (Version 1)
Quarter: 2013Q2

REPORT INFORMATION
  Report Type: Spontaneous
  Country: US (occurrence: US)
  Receive Date: 20130405
  Receipt Date: 20130405
  Transmission Date: 20140414
  Serious: Yes (Hospitalization)
  Sender: FDA-Public Use
  Company Number: US-AMGEN-USASP2013022963

PATIENT
  Age: 50 Year
  Sex: Male
  Weight: 87.08 kg

DRUGS (6)
  1. ENBREL [Suspect]
     Indication: PRODUCT USED FOR UNKNOWN INDICATION
     Dosage: 50 MG, QWK
     Route: 058
  2. ALLEGRA-D [Concomitant]
     Dosage: UNK UNK, QD
     Route: 048
  3. MULTIVITAMINS, PLAIN [Concomitant]
     Dosage: UNK
     Route: 048
  4. ALEVE [Concomitant]
     Dosage: 220 MG, UNK
     Route: 048
  5. FLOMAX                             /01280302/ [Concomitant]
     Dosage: 0.4 MG, UNK
     Route: 048
  6. PRILOSEC                           /00661201/ [Concomitant]
     Dosage: 20 MG, UNK
     Route: 048

REACTIONS (4)
  - Pericarditis [Unknown]
  - Hypertension [Unknown]
  - Chest pain [Unknown]
  - Sinusitis [Unknown]
